APPROVED DRUG PRODUCT: CEFUROXIME AXETIL
Active Ingredient: CEFUROXIME AXETIL
Strength: EQ 250MG BASE
Dosage Form/Route: TABLET;ORAL
Application: A065043 | Product #002
Applicant: RANBAXY LABORATORIES LTD
Approved: Feb 15, 2002 | RLD: No | RS: No | Type: DISCN